APPROVED DRUG PRODUCT: CETIRIZINE HYDROCHLORIDE ALLERGY
Active Ingredient: CETIRIZINE HYDROCHLORIDE
Strength: 5MG
Dosage Form/Route: TABLET;ORAL
Application: A077318 | Product #001
Applicant: CIPLA LTD
Approved: Jul 25, 2013 | RLD: No | RS: No | Type: DISCN